FAERS Safety Report 23411758 (Version 1)
Quarter: 2024Q1

REPORT INFORMATION
  Report Type: Spontaneous
  Country: US (occurrence: None)
  Receive Date: 20240117
  Receipt Date: 20240117
  Transmission Date: 20240410
  Serious: Yes (Hospitalization)
  Sender: FDA-Public Use
  Company Number: None

PATIENT
  Age: 80 Year
  Sex: Male

DRUGS (1)
  1. PIRFENIDONE [Suspect]
     Active Substance: PIRFENIDONE
     Indication: Pulmonary fibrosis
     Dosage: 801MG THREE TIMES A DAY ORAL?
     Route: 048
     Dates: start: 20231030

REACTIONS (2)
  - Delirium [None]
  - Pyrexia [None]

NARRATIVE: CASE EVENT DATE: 20231225
